FAERS Safety Report 14848903 (Version 1)
Quarter: 2018Q2

REPORT INFORMATION
  Report Type: Report from Study
  Country: None (occurrence: LB)
  Receive Date: 20180504
  Receipt Date: 20180504
  Transmission Date: 20180711
  Serious: Yes (Hospitalization)
  Sender: FDA-Public Use
  Company Number: LB-ABBVIE-18K-093-2344460-00

PATIENT
  Age: 29 Year
  Sex: Male
  Weight: 85 kg

DRUGS (11)
  1. VALCYTE [Concomitant]
     Active Substance: VALGANCICLOVIR HYDROCHLORIDE
     Indication: CYTOMEGALOVIRUS INFECTION
     Route: 048
     Dates: start: 201801
  2. FELDEN [Concomitant]
     Active Substance: PIROXICAM
     Indication: PAIN
  3. LEXAPRO [Concomitant]
     Active Substance: ESCITALOPRAM OXALATE
     Indication: PAIN
     Route: 048
  4. LEXAPRO [Concomitant]
     Active Substance: ESCITALOPRAM OXALATE
     Indication: FATIGUE
  5. HUMIRA [Suspect]
     Active Substance: ADALIMUMAB
     Dosage: LOADING DOSE
     Route: 058
     Dates: start: 201701, end: 201701
  6. HUMIRA [Suspect]
     Active Substance: ADALIMUMAB
     Route: 058
     Dates: start: 201702, end: 20180410
  7. PREDNISONE. [Concomitant]
     Active Substance: PREDNISONE
     Indication: EYELID OEDEMA
     Route: 048
     Dates: start: 20180413, end: 201804
  8. HUMIRA [Suspect]
     Active Substance: ADALIMUMAB
     Route: 058
     Dates: start: 20180424
  9. AERIUS [Concomitant]
     Active Substance: DESLORATADINE
     Indication: EYELID OEDEMA
     Route: 048
     Dates: start: 20180413, end: 201804
  10. HUMIRA [Suspect]
     Active Substance: ADALIMUMAB
     Indication: CROHN^S DISEASE
     Dosage: LOADING DOSE
     Route: 058
     Dates: start: 201701, end: 201701
  11. FELDEN [Concomitant]
     Active Substance: PIROXICAM
     Indication: FATIGUE

REACTIONS (3)
  - Chromaturia [Not Recovered/Not Resolved]
  - Angina pectoris [Recovered/Resolved]
  - Haemoptysis [Recovered/Resolved]

NARRATIVE: CASE EVENT DATE: 201804
